FAERS Safety Report 15613901 (Version 2)
Quarter: 2018Q4

REPORT INFORMATION
  Report Type: Spontaneous
  Country: US (occurrence: US)
  Receive Date: 20181113
  Receipt Date: 20181221
  Transmission Date: 20190205
  Serious: Yes (Hospitalization)
  Sender: FDA-Public Use
  Company Number: US-ACTELION-A-US2018-181657

PATIENT
  Age: 4 Year
  Sex: Female

DRUGS (4)
  1. SILDENAFIL. [Concomitant]
     Active Substance: SILDENAFIL
     Dosage: 15 MG, Q8HRS
     Route: 048
     Dates: start: 20181104
  2. TRACLEER [Suspect]
     Active Substance: BOSENTAN
     Indication: PULMONARY HYPERTENSION
     Dosage: 31.25 MG, BID
     Route: 048
     Dates: start: 20180515
  3. BUDESONIDE. [Concomitant]
     Active Substance: BUDESONIDE
     Dosage: 6 MG, QD
     Route: 049
     Dates: start: 20181010
  4. LOVENOX [Concomitant]
     Active Substance: ENOXAPARIN SODIUM
     Dosage: 25 UNK, BID
     Route: 058
     Dates: start: 20181010

REACTIONS (2)
  - Fontan procedure [Unknown]
  - Protein-losing gastroenteropathy [Unknown]
